FAERS Safety Report 4619261-9 (Version None)
Quarter: 2005Q2

REPORT INFORMATION
  Report Type: 
  Country: None (occurrence: None)
  Receive Date: 20050321
  Receipt Date: 20030630
  Transmission Date: 20051028
  Serious: Yes (Hospitalization, Disabling, Other)
  Sender: FDA-Public Use
  Company Number: 2003-07-0219

PATIENT
  Age: 48 Year
  Sex: Female
  Weight: 64.4108 kg

DRUGS (6)
  1. PEG-INTRON [Suspect]
     Indication: HEPATITIS C
     Dosage: 96 MCG QWK, SUBCUTANEOUS
     Route: 058
     Dates: start: 20020904, end: 20020906
  2. REBETOL [Suspect]
     Indication: HEPATITIS C
     Dosage: 1000 MG QD ORAL
     Route: 048
     Dates: start: 20020904, end: 20020906
  3. RELAFEN [Concomitant]
  4. ULTRAM [Concomitant]
  5. AMITRIPTYLINE HCL TAB [Concomitant]
  6. TRIAVIL [Concomitant]

REACTIONS (4)
  - DEPRESSION [None]
  - LEUKOPENIA [None]
  - NEUTROPENIA [None]
  - SUICIDAL IDEATION [None]
